FAERS Safety Report 7904052-3 (Version None)
Quarter: 2011Q4

REPORT INFORMATION
  Report Type: 
  Country: None (occurrence: None)
  Receive Date: 20111109
  Receipt Date: 20111107
  Transmission Date: 20120403
  Serious: Yes (Other)
  Sender: FDA-Public Use
  Company Number: FR-PFIZER INC-2011271396

PATIENT
  Age: 75 Year
  Sex: Male

DRUGS (1)
  1. EFFEXOR XR [Suspect]
     Indication: DEPRESSION
     Dosage: 75 MG, 1X/DAY
     Dates: start: 20010101

REACTIONS (5)
  - DRY MOUTH [None]
  - RESPIRATORY TRACT INFECTION [None]
  - LIBIDO DECREASED [None]
  - FATIGUE [None]
  - MYALGIA [None]
